FAERS Safety Report 16174022 (Version 1)
Quarter: 2019Q2

REPORT INFORMATION
  Report Type: Spontaneous
  Country: US (occurrence: US)
  Receive Date: 20190306
  Receipt Date: 20190306
  Transmission Date: 20190711
  Serious: No
  Sender: FDA-Public Use
  Company Number: None

PATIENT
  Age: 42 Year
  Sex: Female

DRUGS (1)
  1. COPAXONE [Suspect]
     Active Substance: GLATIRAMER ACETATE
     Indication: MULTIPLE SCLEROSIS
     Dates: start: 201202

REACTIONS (5)
  - Dyspnoea [None]
  - Chills [None]
  - Pain [None]
  - Headache [None]
  - Flushing [None]

NARRATIVE: CASE EVENT DATE: 20190306
